FAERS Safety Report 5409683-0 (Version None)
Quarter: 2007Q3

REPORT INFORMATION
  Report Type: 
  Country: None (occurrence: None)
  Receive Date: 20070809
  Receipt Date: 20070731
  Transmission Date: 20080115
  Serious: Yes (Death, Other)
  Sender: FDA-Public Use
  Company Number: US-ELI_LILLY_AND_COMPANY-US_031198621

PATIENT
  Age: 45 Year
  Sex: Female

DRUGS (10)
  1. GEMCITABINE HCL [Suspect]
     Indication: BREAST CANCER RECURRENT
     Dosage: 1300 MG, OTHER
     Route: 042
  2. CARBOPLATIN [Concomitant]
     Indication: BREAST CANCER RECURRENT
     Dosage: 450 MG, OTHER
  3. ARIMIDEX [Concomitant]
     Dosage: 1 MG, UNKNOWN
  4. MS CONTIN [Concomitant]
     Indication: BACK PAIN
     Dosage: 15 MG, UNKNOWN
  5. METYLPREDNISOLON SOLUBILE [Concomitant]
  6. VITAMIN K [Concomitant]
  7. PROMETHAZINE [Concomitant]
  8. ESOMEPRAZOLE MAGNESIUM [Concomitant]
  9. OXYCODONE HCL [Concomitant]
  10. LEVOFLOXACIN [Concomitant]

REACTIONS (13)
  - ABDOMINAL PAIN UPPER [None]
  - COMA HEPATIC [None]
  - GENERAL PHYSICAL HEALTH DETERIORATION [None]
  - HYPERCALCAEMIA [None]
  - HYPOKALAEMIA [None]
  - HYPONATRAEMIA [None]
  - METASTASES TO BONE [None]
  - METASTASES TO LIVER [None]
  - NAUSEA [None]
  - PLEURAL EFFUSION [None]
  - TACHYCARDIA [None]
  - VOMITING [None]
  - WEIGHT DECREASED [None]
